FAERS Safety Report 15191704 (Version 1)
Quarter: 2018Q3

REPORT INFORMATION
  Report Type: Spontaneous
  Country: US (occurrence: US)
  Receive Date: 20180724
  Receipt Date: 20180724
  Transmission Date: 20181010
  Serious: No
  Sender: FDA-Public Use
  Company Number: US-OSMOTICA_PHARMACEUTICAL_US_LLC-POI0573201700036

PATIENT
  Age: 47 Year
  Sex: Female

DRUGS (3)
  1. DIVIGEL [Suspect]
     Active Substance: ESTRADIOL
     Indication: MENOPAUSAL SYMPTOMS
     Route: 062
     Dates: start: 201611, end: 20170530
  2. DIVIGEL [Suspect]
     Active Substance: ESTRADIOL
     Route: 062
     Dates: start: 20170531
  3. PROGESTERONE MICRONIZED [Concomitant]
     Indication: ENDOMETRIAL HYPERPLASIA

REACTIONS (2)
  - Metrorrhagia [Unknown]
  - Breast tenderness [Unknown]

NARRATIVE: CASE EVENT DATE: 201705
